FAERS Safety Report 24867216 (Version 1)
Quarter: 2025Q1

REPORT INFORMATION
  Report Type: Spontaneous
  Country: BH (occurrence: BH)
  Receive Date: 20250121
  Receipt Date: 20250121
  Transmission Date: 20250408
  Serious: Yes (Hospitalization, Other)
  Sender: OXFORD PHARMACEUTICALS, LLC
  Company Number: BH-Oxford Pharmaceuticals, LLC-2169462

PATIENT
  Age: 2 Day
  Sex: Male

DRUGS (5)
  1. LEVETIRACETAM [Suspect]
     Active Substance: LEVETIRACETAM
     Indication: Status epilepticus
  2. DIAZEPAM [Suspect]
     Active Substance: DIAZEPAM
  3. MIDAZOLAM [Suspect]
     Active Substance: MIDAZOLAM
  4. PHENOBARBITAL [Suspect]
     Active Substance: PHENOBARBITAL
  5. PHENYTOIN [Suspect]
     Active Substance: PHENYTOIN

REACTIONS (2)
  - Drug ineffective [Unknown]
  - Off label use [Unknown]
